FAERS Safety Report 5580625-0 (Version None)
Quarter: 2008Q1

REPORT INFORMATION
  Report Type: 
  Country: None (occurrence: None)
  Receive Date: 20080103
  Receipt Date: 20071226
  Transmission Date: 20080703
  Serious: Yes (Other)
  Sender: FDA-Public Use
  Company Number: DZ-PFIZER INC-2007107697

PATIENT
  Age: 79 Year
  Sex: Male

DRUGS (2)
  1. CELEBREX [Suspect]
     Indication: OSTEOARTHRITIS
     Route: 048
  2. SINTROM [Concomitant]

REACTIONS (3)
  - EPISTAXIS [None]
  - GINGIVAL BLEEDING [None]
  - HAEMATURIA [None]
